FAERS Safety Report 9855906 (Version 1)
Quarter: 2013Q4

REPORT INFORMATION
  Report Type: Spontaneous
  Country: US (occurrence: None)
  Receive Date: 20131226
  Receipt Date: 20131226
  Transmission Date: 20140711
  Serious: No
  Sender: FDA-Public Use
  Company Number: PHEH2013US014474

PATIENT
  Age: 49 Year
  Sex: Female

DRUGS (1)
  1. GILENYA (FINGOLIMOD) CAPSULE [Suspect]
     Indication: MULTIPLE SCLEROSIS
     Route: 048

REACTIONS (9)
  - Micturition urgency [None]
  - Sensation of heaviness [None]
  - Pain in extremity [None]
  - Dysgraphia [None]
  - Hypoaesthesia [None]
  - Stress [None]
  - Limb discomfort [None]
  - Fatigue [None]
  - Migraine [None]
